FAERS Safety Report 4417838-7 (Version None)
Quarter: 2004Q2

REPORT INFORMATION
  Report Type: 
  Country: None (occurrence: None)
  Receive Date: 20040621
  Receipt Date: 20040404
  Transmission Date: 20050107
  Serious: Yes (Other)
  Sender: FDA-Public Use
  Company Number: 2004022945

PATIENT
  Age: 74 Year
  Sex: Female
  Weight: 52.1637 kg

DRUGS (9)
  1. VFEND [Suspect]
     Indication: ASPERGILLOSIS
     Dosage: 1200 MG (BID), ORAL
     Route: 048
     Dates: start: 20040401
  2. ATENOLOL [Concomitant]
  3. DILTIAZEM HYDROCHLORIDE [Concomitant]
  4. LEVOTHYROXINE SODIUM [Concomitant]
  5. DIGOXIN [Concomitant]
  6. OMEPRAZOLE [Concomitant]
  7. CIPROFLOXACIN [Concomitant]
  8. PLATELETS [Concomitant]
  9. ALL OTHER THERAPEUTIC PRODUCTS (ALL OTHER THERAPEUTIC PRODUCTS) [Concomitant]

REACTIONS (8)
  - ANXIETY [None]
  - DEPRESSION [None]
  - HALLUCINATION [None]
  - INTENTIONAL OVERDOSE [None]
  - MEDICATION ERROR [None]
  - NAUSEA [None]
  - POLLAKIURIA [None]
  - VISUAL DISTURBANCE [None]
